FAERS Safety Report 25046995 (Version 4)
Quarter: 2025Q3

REPORT INFORMATION
  Report Type: Report from Study
  Country: US (occurrence: US)
  Receive Date: 20250306
  Receipt Date: 20250731
  Transmission Date: 20251021
  Serious: Yes (Other)
  Sender: ABBVIE
  Company Number: US-ABBVIE-6158276

PATIENT
  Age: 76 Year
  Sex: Female

DRUGS (2)
  1. SKYRIZI [Suspect]
     Active Substance: RISANKIZUMAB-RZAA
     Indication: Psoriasis
     Dosage: FORM STRENGTH: 150 MILLIGRAM
     Route: 058
     Dates: start: 20250131
  2. COLESTIPOL [Concomitant]
     Active Substance: COLESTIPOL
     Indication: Gastrointestinal motility disorder

REACTIONS (15)
  - Pulmonary oedema [Unknown]
  - Peripheral swelling [Recovered/Resolved]
  - Pulmonary oedema [Recovered/Resolved]
  - Dyspnoea [Unknown]
  - Fatigue [Not Recovered/Not Resolved]
  - Temperature intolerance [Unknown]
  - Asthenia [Unknown]
  - Therapeutic product effect incomplete [Unknown]
  - Unevaluable event [Not Recovered/Not Resolved]
  - Dehydration [Unknown]
  - Pollakiuria [Unknown]
  - Weight decreased [Unknown]
  - Musculoskeletal stiffness [Unknown]
  - Feeling abnormal [Unknown]
  - Peripheral swelling [Recovered/Resolved]

NARRATIVE: CASE EVENT DATE: 20250101
